FAERS Safety Report 4464993-9 (Version None)
Quarter: 2004Q4

REPORT INFORMATION
  Report Type: 
  Country: None (occurrence: None)
  Receive Date: 20041004
  Receipt Date: 20040526
  Transmission Date: 20050328
  Serious: Yes (Life-Threatening, Hospitalization)
  Sender: FDA-Public Use
  Company Number: 369252

PATIENT
  Age: 59 Year
  Sex: Female
  Weight: 77.7 kg

DRUGS (9)
  1. COREG [Suspect]
     Indication: HYPERTENSION
     Dosage: 6.25MG SINGLE DOSE
     Route: 048
     Dates: start: 20040422, end: 20040422
  2. VASOTEC [Concomitant]
  3. SYNTHROID [Concomitant]
  4. AVANDIA [Concomitant]
  5. GLUCOTROL XL [Concomitant]
  6. XANAX [Concomitant]
  7. NORPRAMINE [Concomitant]
  8. ALLEGRA [Concomitant]
  9. NASONEX [Concomitant]

REACTIONS (4)
  - DIARRHOEA [None]
  - FALL [None]
  - HEART RATE INCREASED [None]
  - HYPOTENSION [None]
